FAERS Safety Report 5296007-5 (Version None)
Quarter: 2007Q1

REPORT INFORMATION
  Report Type: 
  Country: None (occurrence: None)
  Receive Date: 20070201
  Receipt Date: 20061027
  Transmission Date: 20070707
  Serious: No
  Sender: FDA-Public Use
  Company Number: 2006PV024013

PATIENT
  Age: 51 Year
  Sex: Female

DRUGS (13)
  1. BYETTA [Suspect]
     Indication: DRUG USE FOR UNKNOWN INDICATION
     Dosage: 5 MCG;BID;SC
     Route: 058
     Dates: start: 20060920, end: 20061002
  2. METFORMIN HCL [Concomitant]
  3. PRANDIN [Concomitant]
  4. DIOVAN [Concomitant]
  5. ASPIRIN [Concomitant]
  6. HYDROCHLOROTHIAZIDE [Concomitant]
  7. ALLEGRA [Concomitant]
  8. ASACOL [Concomitant]
  9. VITAMIN CAP [Concomitant]
  10. FISH OIL [Concomitant]
  11. VITAMIN E [Concomitant]
  12. COENZYME Q10 [Concomitant]
  13. LUPRON [Concomitant]

REACTIONS (1)
  - PYREXIA [None]
